FAERS Safety Report 11520325 (Version 2)
Quarter: 2017Q1

REPORT INFORMATION
  Report Type: Report from Study
  Country: US (occurrence: US)
  Receive Date: 20150918
  Receipt Date: 20170321
  Transmission Date: 20170428
  Serious: No
  Sender: FDA-Public Use
  Company Number: PHEH2015US011610

PATIENT
  Sex: Male

DRUGS (2)
  1. COSENTYX [Suspect]
     Active Substance: SECUKINUMAB
     Dosage: UNK OT, QMO
     Route: 065
  2. COSENTYX [Suspect]
     Active Substance: SECUKINUMAB
     Indication: PSORIASIS
     Dosage: UNK
     Route: 065
     Dates: start: 20150402

REACTIONS (6)
  - Arthritis [Unknown]
  - Drug effect incomplete [Unknown]
  - Sinus disorder [Unknown]
  - Sneezing [Unknown]
  - Psoriasis [Unknown]
  - Drug administration error [Unknown]
